FAERS Safety Report 19976066 (Version 1)
Quarter: 2021Q4

REPORT INFORMATION
  Report Type: Spontaneous
  Country: CA (occurrence: CA)
  Receive Date: 20211020
  Receipt Date: 20211020
  Transmission Date: 20220303
  Serious: Yes (Other)
  Sender: FDA-Public Use
  Company Number: CA-PFIZER INC-2019486289

PATIENT
  Age: 55 Year
  Sex: Female

DRUGS (6)
  1. XELJANZ [Suspect]
     Active Substance: TOFACITINIB CITRATE
     Indication: Psoriatic arthropathy
     Dosage: 5 MG, 2X/DAY
     Route: 048
     Dates: start: 20191007
  2. CELECOXIB [Concomitant]
     Active Substance: CELECOXIB
     Dosage: 200 MG, UNK
     Route: 065
  3. ESOMEPRAZOLE. [Concomitant]
     Active Substance: ESOMEPRAZOLE MAGNESIUM
     Dosage: 40 MG, UNK
     Route: 065
  4. FOLIC ACID [Concomitant]
     Active Substance: FOLIC ACID
     Dosage: 5 MG, UNK
     Route: 065
  5. METHOTREXATE [Concomitant]
     Active Substance: METHOTREXATE
     Dosage: 20 MG, UNK
     Route: 065
  6. VITAMIN D [Concomitant]
     Active Substance: VITAMIN D NOS
     Dosage: UNK
     Route: 065

REACTIONS (7)
  - Postmenopausal haemorrhage [Not Recovered/Not Resolved]
  - Faeces soft [Unknown]
  - C-reactive protein decreased [Unknown]
  - Abdominal pain upper [Not Recovered/Not Resolved]
  - Blood parathyroid hormone increased [Unknown]
  - Blood cholesterol increased [Unknown]
  - Herpes zoster [Not Recovered/Not Resolved]
